FAERS Safety Report 7933438-6 (Version None)
Quarter: 2011Q4

REPORT INFORMATION
  Report Type: 
  Country: None (occurrence: None)
  Receive Date: 20111122
  Receipt Date: 20110810
  Transmission Date: 20120403
  Serious: No
  Sender: FDA-Public Use
  Company Number: US-BAYER-2011-073132

PATIENT
  Age: 89 Year
  Sex: Female
  Weight: 45.351 kg

DRUGS (9)
  1. ASPIRIN [Concomitant]
  2. VITAMIN B-12 [Concomitant]
  3. COENZYME Q10 [Concomitant]
     Dosage: UNK
  4. MULTI-VITAMINS [Concomitant]
  5. NAPROXEN (ALEVE) [Suspect]
     Indication: ARTHRITIS
     Dosage: 1 DF, BID
     Route: 048
     Dates: start: 20101101, end: 20111114
  6. ANTIHYPERTENSIVES [Concomitant]
  7. NAPROXEN (ALEVE) [Suspect]
     Indication: PAIN
  8. XANAX [Concomitant]
  9. VITAMIN D [Concomitant]

REACTIONS (1)
  - PAIN [None]
